FAERS Safety Report 7726792-1 (Version None)
Quarter: 2011Q3

REPORT INFORMATION
  Report Type: 
  Country: None (occurrence: None)
  Receive Date: 20110902
  Receipt Date: 20110826
  Transmission Date: 20111222
  Serious: Yes (Life-Threatening, Hospitalization)
  Sender: FDA-Public Use
  Company Number: RU-GLAXOSMITHKLINE-B0665705A

PATIENT
  Age: 8 Year
  Sex: Male

DRUGS (5)
  1. CYCLOPHOSPHAMIDE [Concomitant]
     Indication: LYMPHOCYTIC LEUKAEMIA
     Route: 065
     Dates: start: 20100501, end: 20100701
  2. CYTARABINE [Concomitant]
     Indication: LYMPHOCYTIC LEUKAEMIA
     Dates: start: 20100501, end: 20100601
  3. ATRIANCE [Suspect]
     Indication: LYMPHOCYTIC LEUKAEMIA
     Route: 065
     Dates: start: 20100501, end: 20100701
  4. CEFTRIAXONE [Concomitant]
  5. INFUSION [Concomitant]

REACTIONS (13)
  - CONDITION AGGRAVATED [None]
  - PULMONARY OEDEMA [None]
  - LEFT VENTRICULAR FAILURE [None]
  - LUNG DISORDER [None]
  - BONE MARROW DISORDER [None]
  - ADRENAL INSUFFICIENCY [None]
  - EJECTION FRACTION DECREASED [None]
  - HYPOTENSION [None]
  - CARDIOTOXICITY [None]
  - CARDIOMYOPATHY [None]
  - BONE MARROW TRANSPLANT [None]
  - CARDIAC DISORDER [None]
  - SKIN LESION [None]
